FAERS Safety Report 4291414-1 (Version None)
Quarter: 2004Q1

REPORT INFORMATION
  Report Type: 
  Country: None (occurrence: None)
  Receive Date: 20040211
  Receipt Date: 20040203
  Transmission Date: 20041129
  Serious: Yes (Other)
  Sender: FDA-Public Use
  Company Number: PHEH2004US01629

PATIENT
  Sex: Female

DRUGS (1)
  1. LAMISIL [Suspect]
     Route: 048

REACTIONS (1)
  - ANGIONEUROTIC OEDEMA [None]
